FAERS Safety Report 8430902-0 (Version None)
Quarter: 2012Q2

REPORT INFORMATION
  Report Type: 
  Country: None (occurrence: None)
  Receive Date: 20120612
  Receipt Date: 20120605
  Transmission Date: 20120825
  Serious: Yes (Hospitalization, Disabling)
  Sender: FDA-Public Use
  Company Number: BE-PFIZER INC-2012134596

PATIENT
  Age: 83 Year
  Sex: Female

DRUGS (17)
  1. MAGNEPAMYL [Concomitant]
     Indication: MUSCLE SPASMS
     Dosage: 1XDAY
     Route: 048
  2. ESCITALOPRAM OXALATE [Concomitant]
     Indication: DEPRESSION
     Dosage: 5 MG, 1X/DAY
     Route: 048
  3. LERCANIDIPINE [Concomitant]
     Indication: HYPERTENSION
     Dosage: 20 MG, 1X/DAY
     Route: 048
  4. LOPERAMIDE [Concomitant]
     Indication: POST PROCEDURAL DIARRHOEA
     Dosage: 4 MG, 1X/DAY
     Route: 048
  5. PROVERA [Suspect]
     Indication: ADJUVANT THERAPY
  6. CELIPROLOL [Concomitant]
     Indication: HYPERTENSION
     Dosage: 400 MG, 1X/DAY
     Route: 048
  7. FLUTICASONE PROPIONATE/SALMETEROL [Concomitant]
     Indication: ASTHMA
     Dosage: UNK
     Route: 055
  8. ESCITALOPRAM OXALATE [Concomitant]
     Indication: HYPERVENTILATION
  9. MOXONIDINE [Concomitant]
     Indication: HYPERTENSION
     Dosage: 0.4 MG, 1X/DAY
     Route: 048
  10. CELIPROLOL [Concomitant]
     Indication: TACHYCARDIA
  11. UNI DIAMICRON [Concomitant]
     Indication: DIABETES MELLITUS
     Dosage: 90 MG, 1X/DAY
     Route: 048
  12. LORAZEPAM [Concomitant]
     Indication: INSOMNIA
     Dosage: 1 MG, 1X/DAY
     Route: 048
  13. PANTOPRAZOLE [Concomitant]
     Indication: PROPHYLAXIS
     Dosage: 20 MG, 1X/DAY
     Route: 048
  14. PROVERA [Suspect]
     Indication: ENDOMETRIAL CANCER RECURRENT
     Dosage: 250 MG, 1X/DAY
     Route: 048
     Dates: start: 20110210
  15. MEDROL [Suspect]
     Indication: OPTIC ISCHAEMIC NEUROPATHY
     Dosage: 32 MG, 1X/DAY
     Dates: start: 20111201
  16. CLOPIDOGREL [Concomitant]
     Indication: ATHEROSCLEROSIS PROPHYLAXIS
     Dosage: 75 MG, 1X/DAY
     Route: 048
  17. SIMVASTATIN [Concomitant]
     Indication: ATHEROSCLEROSIS PROPHYLAXIS
     Dosage: 20 MG, 1X/DAY
     Route: 048

REACTIONS (4)
  - OPTIC ISCHAEMIC NEUROPATHY [None]
  - MYOPATHY [None]
  - BLINDNESS [None]
  - PAPILLOEDEMA [None]
